FAERS Safety Report 6401562-5 (Version None)
Quarter: 2009Q4

REPORT INFORMATION
  Report Type: 
  Country: None (occurrence: None)
  Receive Date: 20091015
  Receipt Date: 20091014
  Transmission Date: 20100525
  Serious: Yes (Death, Life-Threatening)
  Sender: FDA-Public Use
  Company Number: AR-EISAI INC.-E2020-05193-CLI-AR

PATIENT
  Sex: Female
  Weight: 85 kg

DRUGS (4)
  1. E2020-SR [Suspect]
     Route: 048
     Dates: start: 20090323, end: 20090911
  2. MEMANTINE HCL [Concomitant]
     Route: 048
     Dates: start: 20080110, end: 20090911
  3. ENALAPRIL MALEATE [Concomitant]
     Indication: HYPERTENSION
     Route: 048
     Dates: start: 20000101, end: 20090911
  4. ATORVASTATIN [Concomitant]
     Route: 048
     Dates: start: 20020101, end: 20090911

REACTIONS (3)
  - CARDIO-RESPIRATORY ARREST [None]
  - DUODENAL ULCER PERFORATION [None]
  - METASTASIS [None]
